FAERS Safety Report 4907052-0 (Version None)
Quarter: 2006Q1

REPORT INFORMATION
  Report Type: 
  Country: None (occurrence: None)
  Receive Date: 20060207
  Receipt Date: 20060123
  Transmission Date: 20060701
  Serious: Yes (Death, Hospitalization, Other)
  Sender: FDA-Public Use
  Company Number: US_0509121854

PATIENT
  Age: 75 Year
  Sex: Male

DRUGS (2)
  1. ZYPREXA [Suspect]
     Indication: DEPRESSION
     Dosage: 5 MG
     Dates: start: 20000101, end: 20050101
  2. HYDRALAZINE HCL [Concomitant]

REACTIONS (2)
  - CONVULSION [None]
  - DIABETES MELLITUS [None]
